FAERS Safety Report 8595927-3 (Version None)
Quarter: 2012Q3

REPORT INFORMATION
  Report Type: 
  Country: None (occurrence: None)
  Receive Date: 20120807
  Receipt Date: 20120807
  Transmission Date: 20120928
  Serious: Yes (Other)
  Sender: FDA-Public Use
  Company Number: None

PATIENT
  Sex: Female
  Weight: 56.6996 kg

DRUGS (1)
  1. ESTRADIOL [Suspect]
     Indication: MENOPAUSE
     Dosage: ONE PER DAY

REACTIONS (7)
  - HEADACHE [None]
  - PALPITATIONS [None]
  - MENOPAUSAL SYMPTOMS [None]
  - MANIA [None]
  - DIARRHOEA [None]
  - GINGIVAL BLEEDING [None]
  - NAUSEA [None]
